FAERS Safety Report 8249477-4 (Version None)
Quarter: 2012Q1

REPORT INFORMATION
  Report Type: 
  Country: None (occurrence: None)
  Receive Date: 20120316
  Receipt Date: 20100820
  Transmission Date: 20120608
  Serious: Yes (Other)
  Sender: FDA-Public Use
  Company Number: PHHY2010US55072

PATIENT
  Age: 63 Year
  Sex: Female

DRUGS (1)
  1. TEKTURNA [Suspect]
     Indication: HYPERTENSION
     Dosage: 300 MG DAILY, ORAL
     Route: 048
     Dates: start: 20100707

REACTIONS (2)
  - LIP SWELLING [None]
  - ANGIOEDEMA [None]
